FAERS Safety Report 21555392 (Version 1)
Quarter: 2022Q4

REPORT INFORMATION
  Report Type: Spontaneous
  Country: GB (occurrence: GB)
  Receive Date: 20221104
  Receipt Date: 20221104
  Transmission Date: 20230113
  Serious: Yes (Other)
  Sender: FDA-Public Use
  Company Number: GB-MHRA-WEBRADR-20221019075331

PATIENT
  Age: 35 Year
  Sex: Male
  Weight: 127 kg

DRUGS (1)
  1. CIPROFLOXACIN [Suspect]
     Active Substance: CIPROFLOXACIN
     Indication: Infection
     Dosage: UNK, TABLET
     Route: 048
     Dates: start: 20221011, end: 20221018

REACTIONS (4)
  - Myalgia [Recovering/Resolving]
  - Nausea [Recovered/Resolved]
  - Arthralgia [Recovering/Resolving]
  - Pruritus [Recovering/Resolving]

NARRATIVE: CASE EVENT DATE: 20221011
